FAERS Safety Report 8979308 (Version 1)
Quarter: 2012Q4

REPORT INFORMATION
  Report Type: Report from Study
  Country: FR (occurrence: FR)
  Receive Date: 20121221
  Receipt Date: 20121221
  Transmission Date: 20130627
  Serious: Yes (Other)
  Sender: FDA-Public Use
  Company Number: FR-NOVOPROD-342667

PATIENT
  Age: 57 Year
  Sex: Female
  Weight: 88 kg

DRUGS (1)
  1. LIRAGLUTIDE FLEXPEN [Suspect]
     Indication: TYPE 2 DIABETES MELLITUS
     Dosage: 0.6 mg, qd
     Route: 058
     Dates: start: 20111029, end: 20111121

REACTIONS (4)
  - Myalgia [Unknown]
  - Fatigue [Unknown]
  - Sensation of heaviness [Unknown]
  - Hypoaesthesia [Unknown]
